FAERS Safety Report 9875638 (Version 2)
Quarter: 2014Q1

REPORT INFORMATION
  Report Type: Spontaneous
  Country: US (occurrence: US)
  Receive Date: 20140206
  Receipt Date: 20140206
  Transmission Date: 20141002
  Serious: No
  Sender: FDA-Public Use
  Company Number: US-ACORDA-ACO_36799_2013

PATIENT
  Age: 50 Year
  Sex: Male
  Weight: 79.37 kg

DRUGS (10)
  1. AMPYRA [Suspect]
     Indication: GAIT DISTURBANCE
     Dosage: 10 MG, BID
     Route: 048
     Dates: end: 20130609
  2. AMPYRA [Suspect]
     Dosage: UNK,UNK
     Route: 065
     Dates: start: 20130616
  3. COPAXONE [Concomitant]
     Indication: MULTIPLE SCLEROSIS
     Dosage: UNK, DAILY
     Route: 065
  4. PERCOCET [Concomitant]
     Indication: BACK PAIN
     Dosage: UNK,UNK
     Route: 065
  5. EXALGO [Concomitant]
     Indication: PAIN
     Dosage: 16 MG, QID
     Route: 065
  6. AMBIEN [Concomitant]
     Indication: INSOMNIA
     Dosage: UNK,UNK
     Route: 065
  7. TRAZODONE HCL [Concomitant]
     Indication: DEPRESSION
     Dosage: UNK,UNK
     Route: 065
  8. TRAZODONE HCL [Concomitant]
     Indication: INSOMNIA
  9. ZOLOFT [Concomitant]
     Indication: DEPRESSION
     Dosage: UNK,UNK
     Route: 065
  10. KLONOPIN [Concomitant]
     Indication: ANXIETY
     Dosage: UNK,UNK
     Route: 065

REACTIONS (4)
  - Hemiparesis [Recovered/Resolved]
  - Activities of daily living impaired [Recovered/Resolved]
  - Muscular weakness [Unknown]
  - Asthenia [Recovered/Resolved]
